FAERS Safety Report 5629568-4 (Version None)
Quarter: 2008Q1

REPORT INFORMATION
  Report Type: 
  Country: None (occurrence: None)
  Receive Date: 20080213
  Receipt Date: 20080213
  Transmission Date: 20080703
  Serious: Yes (Other)
  Sender: FDA-Public Use
  Company Number: None

PATIENT
  Age: 77 Year
  Sex: Female
  Weight: 83.0083 kg

DRUGS (1)
  1. METFORMIN HCL [Suspect]
     Indication: TYPE 2 DIABETES MELLITUS
     Dosage: 500MG  2 PO BID  ORAL
     Route: 048
     Dates: start: 20030311, end: 20030326

REACTIONS (3)
  - NAUSEA [None]
  - RASH GENERALISED [None]
  - VOMITING [None]
